FAERS Safety Report 10708888 (Version 1)
Quarter: 2015Q1

REPORT INFORMATION
  Report Type: Spontaneous
  Country: CN (occurrence: CN)
  Receive Date: 20150114
  Receipt Date: 20150114
  Transmission Date: 20150721
  Serious: Yes (Other)
  Sender: FDA-Public Use
  Company Number: CN-JNJFOC-20150101886

PATIENT
  Age: 6 Month
  Sex: Male
  Weight: 8.5 kg

DRUGS (3)
  1. CEFACLOR. [Suspect]
     Active Substance: CEFACLOR
     Indication: PYREXIA
     Route: 048
     Dates: start: 20140820, end: 20140823
  2. TYLENOL [Suspect]
     Active Substance: ACETAMINOPHEN
     Indication: PYREXIA
     Route: 048
     Dates: start: 20140820, end: 20140823
  3. CHINESE HERBAL MEDICINE [Suspect]
     Active Substance: HERBALS
     Indication: PYREXIA
     Route: 048
     Dates: start: 20140820, end: 20140823

REACTIONS (1)
  - Hepatic function abnormal [Recovering/Resolving]

NARRATIVE: CASE EVENT DATE: 20140823
